FAERS Safety Report 14777654 (Version 2)
Quarter: 2018Q2

REPORT INFORMATION
  Report Type: Spontaneous
  Country: ES (occurrence: ES)
  Receive Date: 20180419
  Receipt Date: 20180510
  Transmission Date: 20180711
  Serious: Yes (Other)
  Sender: FDA-Public Use
  Company Number: ES-ACCORD-065659

PATIENT
  Age: 76 Year
  Sex: Male

DRUGS (3)
  1. ENZALUTAMIDE [Suspect]
     Active Substance: ENZALUTAMIDE
     Indication: PROSTATE CANCER METASTATIC
     Dosage: FORMULATION UNKNOWN
  2. BICALUTAMIDE. [Suspect]
     Active Substance: BICALUTAMIDE
     Indication: PROSTATE CANCER METASTATIC
     Dates: start: 2013, end: 201406
  3. ELIGARD [Suspect]
     Active Substance: LEUPROLIDE ACETATE
     Indication: PROSTATE CANCER METASTATIC
     Dates: start: 2013, end: 201406

REACTIONS (4)
  - Therapy partial responder [Unknown]
  - Metastases to bone [Unknown]
  - Prostatic specific antigen increased [Unknown]
  - Asthenia [Unknown]

NARRATIVE: CASE EVENT DATE: 201310
